FAERS Safety Report 5045706-9 (Version None)
Quarter: 2006Q3

REPORT INFORMATION
  Report Type: 
  Country: None (occurrence: None)
  Receive Date: 20060710
  Receipt Date: 20060519
  Transmission Date: 20061208
  Serious: Yes (Other)
  Sender: FDA-Public Use
  Company Number: PHBS2006BR07708

PATIENT
  Age: 15 Year
  Sex: Male
  Weight: 55.5 kg

DRUGS (1)
  1. RITALIN [Suspect]
     Indication: ATTENTION DEFICIT/HYPERACTIVITY DISORDER
     Dosage: 10 MG, BID
     Route: 048
     Dates: start: 20050301

REACTIONS (3)
  - MICROALBUMINURIA [None]
  - NIGHT SWEATS [None]
  - PROTEINURIA [None]
